FAERS Safety Report 22169066 (Version 1)
Quarter: 2023Q2

REPORT INFORMATION
  Report Type: Spontaneous
  Country: RU (occurrence: RU)
  Receive Date: 20230404
  Receipt Date: 20230404
  Transmission Date: 20230721
  Serious: Yes (Hospitalization)
  Sender: FDA-Public Use
  Company Number: RU-ABBOTT-2023A-1361560

PATIENT
  Sex: Female

DRUGS (2)
  1. CLARITHROMYCIN [Suspect]
     Active Substance: CLARITHROMYCIN
     Indication: Helicobacter infection
     Route: 065
  2. Solutab [Concomitant]
     Indication: Helicobacter infection
     Dosage: 1000 * 2 TIMES A DAY

REACTIONS (7)
  - Angioedema [Unknown]
  - Asthenia [Recovered/Resolved]
  - Dry mouth [Unknown]
  - Nausea [Unknown]
  - Dysphagia [Unknown]
  - Sensation of foreign body [Unknown]
  - Dyspnoea [Recovered/Resolved]
